FAERS Safety Report 21158550 (Version 2)
Quarter: 2022Q3

REPORT INFORMATION
  Report Type: Spontaneous
  Country: US (occurrence: US)
  Receive Date: 20220801
  Receipt Date: 20220803
  Transmission Date: 20221027
  Serious: No
  Sender: FDA-Public Use
  Company Number: US-BAUSCH-BL-2022-018935

PATIENT
  Age: 77 Year
  Sex: Female

DRUGS (3)
  1. TROPICAMIDE [Suspect]
     Active Substance: TROPICAMIDE
     Indication: Pupil dilation procedure
     Route: 065
  2. MYDRIACYL [Concomitant]
     Active Substance: TROPICAMIDE
     Indication: Product used for unknown indication
     Route: 065
  3. FLUORES [FLUORESCEIN SODIUM] [Concomitant]
     Indication: Product used for unknown indication
     Route: 065

REACTIONS (2)
  - Mood altered [Unknown]
  - Disturbance in attention [Unknown]

NARRATIVE: CASE EVENT DATE: 20220513
